FAERS Safety Report 8016512-8 (Version None)
Quarter: 2011Q4

REPORT INFORMATION
  Report Type: 
  Country: None (occurrence: None)
  Receive Date: 20111230
  Receipt Date: 20111228
  Transmission Date: 20120403
  Serious: Yes (Hospitalization)
  Sender: FDA-Public Use
  Company Number: US-ROCHE-1025925

PATIENT
  Age: 65 Year
  Sex: Female
  Weight: 50.5 kg

DRUGS (3)
  1. DOCETAXEL [Suspect]
     Indication: NON-SMALL CELL LUNG CANCER
     Dosage: OVER 60 MIN ON DAY 1
     Route: 042
  2. AVASTIN [Suspect]
     Indication: NON-SMALL CELL LUNG CANCER
     Dosage: OVER 30-90 MIN ON DAY 1Q 3 WKS, FOR UP TO 1 YEAR
     Route: 042
  3. CISPLATIN [Suspect]
     Indication: NON-SMALL CELL LUNG CANCER
     Dosage: OVER 60 MIN ON DAY 1
     Route: 042

REACTIONS (5)
  - DEHYDRATION [None]
  - URINARY TRACT INFECTION [None]
  - LUNG INFECTION [None]
  - ANAEMIA [None]
  - RENAL FAILURE ACUTE [None]
